FAERS Safety Report 13894899 (Version 1)
Quarter: 2017Q3

REPORT INFORMATION
  Report Type: Spontaneous
  Country: US (occurrence: US)
  Receive Date: 20170817
  Receipt Date: 20170817
  Transmission Date: 20171127
  Serious: Yes (Disabling)
  Sender: FDA-Public Use
  Company Number: None

PATIENT
  Sex: Female
  Weight: 48.6 kg

DRUGS (11)
  1. PANTOPRAZOLE [Concomitant]
     Active Substance: PANTOPRAZOLE
  2. CARBIDOPA-LEVODOPA [Concomitant]
     Active Substance: CARBIDOPA\LEVODOPA
  3. BABY ASPIRIN [Concomitant]
     Active Substance: ASPIRIN
  4. MULTI VITAMIN [Concomitant]
     Active Substance: VITAMINS
  5. VALSARTAN. [Concomitant]
     Active Substance: VALSARTAN
  6. MYRBETRIQ [Concomitant]
     Active Substance: MIRABEGRON
  7. AMOXAPINE. [Concomitant]
     Active Substance: AMOXAPINE
  8. TYLENOL [Concomitant]
     Active Substance: ACETAMINOPHEN
  9. LORATADINE. [Concomitant]
     Active Substance: LORATADINE
  10. NITROFURANTN 100 MG CAP NORT [Suspect]
     Active Substance: NITROFURANTOIN
     Indication: URINARY TRACT INFECTION
     Dosage: ?          QUANTITY:14 CAPSULE(S);?
     Route: 048
     Dates: start: 20160722, end: 20160728
  11. SYNTHROID [Concomitant]
     Active Substance: LEVOTHYROXINE SODIUM

REACTIONS (9)
  - Neuropathy peripheral [None]
  - Dysstasia [None]
  - Confusional state [None]
  - Asthenia [None]
  - Lethargy [None]
  - Malaise [None]
  - Atrophy [None]
  - Parkinson^s disease [None]
  - Movement disorder [None]

NARRATIVE: CASE EVENT DATE: 20160722
